FAERS Safety Report 15464779 (Version 3)
Quarter: 2019Q2

REPORT INFORMATION
  Report Type: Spontaneous
  Country: US (occurrence: US)
  Receive Date: 20181004
  Receipt Date: 20190509
  Transmission Date: 20190711
  Serious: No
  Sender: FDA-Public Use
  Company Number: US-PFIZER INC-2018394975

PATIENT
  Age: 64 Year
  Sex: Female
  Weight: 73.16 kg

DRUGS (1)
  1. HYDROMORPHONE HYDROCHLORIDE. [Suspect]
     Active Substance: HYDROMORPHONE HYDROCHLORIDE
     Indication: PAIN
     Dosage: 7.592 MG, DAILY 10 PERCENT FOR THE PAIN PUMP

REACTIONS (1)
  - Drug ineffective [Not Recovered/Not Resolved]
